FAERS Safety Report 23237431 (Version 1)
Quarter: 2023Q4

REPORT INFORMATION
  Report Type: Spontaneous
  Country: US (occurrence: US)
  Receive Date: 20231128
  Receipt Date: 20231128
  Transmission Date: 20240109
  Serious: Yes (Other)
  Sender: FDA-Public Use
  Company Number: US-009507513-2311USA008316

PATIENT
  Age: 66 Year
  Sex: Male

DRUGS (2)
  1. KEYTRUDA [Suspect]
     Active Substance: PEMBROLIZUMAB
     Indication: Lung squamous cell carcinoma metastatic
     Dosage: UNK, Q3W
     Dates: start: 201902
  2. KEYTRUDA [Suspect]
     Active Substance: PEMBROLIZUMAB
     Dosage: UNK, Q3W
     Dates: start: 201907

REACTIONS (2)
  - Immune-mediated hepatitis [Unknown]
  - Immune-mediated hypothyroidism [Recovering/Resolving]

NARRATIVE: CASE EVENT DATE: 20190101
